FAERS Safety Report 5514898-7 (Version None)
Quarter: 2007Q4

REPORT INFORMATION
  Report Type: 
  Country: None (occurrence: None)
  Receive Date: 20071113
  Receipt Date: 20060922
  Transmission Date: 20080405
  Serious: No
  Sender: FDA-Public Use
  Company Number: A0621217A

PATIENT
  Sex: Male

DRUGS (1)
  1. COREG [Suspect]
     Dosage: 50MG TWICE PER DAY

REACTIONS (1)
  - ERECTILE DYSFUNCTION [None]
